FAERS Safety Report 4546678-3 (Version None)
Quarter: 2005Q1

REPORT INFORMATION
  Report Type: 
  Country: None (occurrence: None)
  Receive Date: 20050105
  Receipt Date: 20041213
  Transmission Date: 20050727
  Serious: Yes (Hospitalization)
  Sender: FDA-Public Use
  Company Number: 9512

PATIENT
  Age: 65 Year
  Sex: Male

DRUGS (1)
  1. ACYCLOVIR [Suspect]
     Indication: HERPES ZOSTER
     Dosage: PO
     Route: 048

REACTIONS (11)
  - CEREBRAL DISORDER [None]
  - DELIRIUM [None]
  - DISTURBANCE IN ATTENTION [None]
  - ELECTROENCEPHALOGRAM ABNORMAL [None]
  - HALLUCINATION, VISUAL [None]
  - HERPES ZOSTER [None]
  - NEUROTOXICITY [None]
  - PROCEDURAL COMPLICATION [None]
  - PYREXIA [None]
  - RESTLESSNESS [None]
  - SYNOVIAL FLUID WHITE BLOOD CELLS POSITIVE [None]
